FAERS Safety Report 4517892-8 (Version None)
Quarter: 2004Q4

REPORT INFORMATION
  Report Type: 
  Country: None (occurrence: None)
  Receive Date: 20041203
  Receipt Date: 20041101
  Transmission Date: 20050328
  Serious: Yes (Life-Threatening, Hospitalization, Disabling)
  Sender: FDA-Public Use
  Company Number: US-MERCK-0411USA00212

PATIENT
  Age: 51 Year
  Sex: Female
  Weight: 64 kg

DRUGS (14)
  1. VIOXX [Suspect]
     Indication: RADICULITIS CERVICAL
     Route: 048
     Dates: start: 19991110, end: 19990101
  2. VIOXX [Suspect]
     Route: 048
     Dates: start: 19991111, end: 19990101
  3. VIOXX [Suspect]
     Indication: OSTEOARTHRITIS
     Route: 048
     Dates: start: 19991110, end: 19990101
  4. VIOXX [Suspect]
     Route: 048
     Dates: start: 19991111, end: 19990101
  5. CELEXA [Concomitant]
     Route: 065
  6. DYNACIRC [Concomitant]
     Route: 065
  7. ZOCOR [Concomitant]
     Route: 048
  8. PROZAC [Concomitant]
     Route: 065
     Dates: start: 19990424
  9. TRAZODONE HYDROCHLORIDE [Concomitant]
     Route: 065
     Dates: start: 19990424
  10. KLONOPIN [Concomitant]
     Route: 065
     Dates: start: 19990424
  11. ULTRAM [Concomitant]
     Indication: RADICULITIS CERVICAL
     Route: 065
     Dates: start: 19991110
  12. ULTRAM [Concomitant]
     Indication: OSTEOARTHRITIS
     Route: 065
     Dates: start: 19991110
  13. RISPERDAL [Concomitant]
     Indication: RADICULITIS CERVICAL
     Route: 065
     Dates: start: 19991010
  14. LORTAB [Concomitant]
     Indication: RADICULITIS CERVICAL
     Route: 065
     Dates: start: 19991010

REACTIONS (2)
  - HEADACHE [None]
  - THROMBOSIS [None]
